FAERS Safety Report 4712986-6 (Version None)
Quarter: 2005Q3

REPORT INFORMATION
  Report Type: 
  Country: None (occurrence: None)
  Receive Date: 20050711
  Receipt Date: 20050630
  Transmission Date: 20060218
  Serious: Yes (Life-Threatening)
  Sender: FDA-Public Use
  Company Number: 31419

PATIENT
  Sex: Male

DRUGS (1)
  1. TRIMETHOPRIM SULFATE/POLYMYXIN B SULFATE OPHTHALMIC SOLUTION [Suspect]
     Indication: CONJUNCTIVITIS
     Dosage: OPHT
     Route: 047

REACTIONS (1)
  - ANAPHYLACTIC SHOCK [None]
